FAERS Safety Report 16589594 (Version 1)
Quarter: 2019Q3

REPORT INFORMATION
  Report Type: Report from Study
  Country: ES (occurrence: ES)
  Receive Date: 20190718
  Receipt Date: 20190718
  Transmission Date: 20191004
  Serious: Yes (Other)
  Sender: FDA-Public Use
  Company Number: ES-ACCORD-139015

PATIENT
  Age: 87 Year
  Sex: Female

DRUGS (7)
  1. ADIRO [Suspect]
     Active Substance: ASPIRIN
     Indication: TYPE 2 DIABETES MELLITUS
     Dosage: 0-1-0, STRENGTH: 100 MG
     Route: 048
     Dates: start: 2005
  2. SERTRALINE [Concomitant]
     Active Substance: SERTRALINE HYDROCHLORIDE
     Dosage: STRENGTH: 50 MG, 30 TABLETS
     Route: 048
  3. FUROSEMIDE. [Suspect]
     Active Substance: FUROSEMIDE
     Indication: HYPERTENSION
     Dosage: STRENGTH: 40 MG, 30 TABLETS, 1-0-0 ALTERNATES 1-1-0 EVERY 48 HOURS
     Route: 048
     Dates: start: 2017, end: 20181205
  4. NOVOMIX [Concomitant]
     Active Substance: INSULIN ASPART
     Dosage: 30 FLEXPEN, STRENGTH: 100 U/ML, SUSPENSION,
     Route: 058
  5. ATARAX [Concomitant]
     Active Substance: HYDROXYZINE HYDROCHLORIDE
     Dosage: STRENGTH: 25 MG, 50 TABLETS
     Route: 048
  6. OMEPRAZOLE. [Concomitant]
     Active Substance: OMEPRAZOLE
     Dosage: STRENGTH: 20 MG, 28 CAPSULES
     Route: 048
  7. LOSARTAN. [Suspect]
     Active Substance: LOSARTAN
     Indication: HYPERTENSION
     Dosage: 1/24H, STRENGTH: 50 MG, 28 TABLETS
     Route: 048
     Dates: start: 2018, end: 20181205

REACTIONS (2)
  - Hyperkalaemia [Recovered/Resolved]
  - Acute kidney injury [Not Recovered/Not Resolved]

NARRATIVE: CASE EVENT DATE: 2018
